FAERS Safety Report 12162012 (Version 1)
Quarter: 2016Q1

REPORT INFORMATION
  Report Type: Spontaneous
  Country: US (occurrence: US)
  Receive Date: 20160309
  Receipt Date: 20160309
  Transmission Date: 20160526
  Serious: Yes (Hospitalization, Other)
  Sender: FDA-Public Use
  Company Number: US-SHIRE-US201602334

PATIENT
  Age: 55 Year
  Sex: Male
  Weight: 106.6 kg

DRUGS (15)
  1. LYRICA [Concomitant]
     Active Substance: PREGABALIN
     Indication: MULTIPLE SCLEROSIS
     Dosage: 200 MG, 3X/DAY:TID
     Route: 065
     Dates: start: 200602
  2. LYRICA [Concomitant]
     Active Substance: PREGABALIN
     Dosage: UNK, UNKNOWN
     Route: 065
  3. METFORMIN [Concomitant]
     Active Substance: METFORMIN HYDROCHLORIDE
     Indication: TYPE 2 DIABETES MELLITUS
     Dosage: 1000 MG, 2X/DAY:BID
     Route: 065
     Dates: start: 1996
  4. AVONEX [Concomitant]
     Active Substance: INTERFERON BETA-1A
     Indication: PRODUCT USED FOR UNKNOWN INDICATION
     Dosage: UNK, 1X/WEEK
     Route: 050
     Dates: start: 200602, end: 2008
  5. BACLOFEN. [Concomitant]
     Active Substance: BACLOFEN
     Indication: MUSCLE RELAXANT THERAPY
     Dosage: 20 MG, 2X/DAY:BID
     Route: 065
  6. FOLIC ACID. [Concomitant]
     Active Substance: FOLIC ACID
     Indication: NERVE DEGENERATION
     Dosage: 500 ?G, 1X/DAY:QD
     Route: 065
     Dates: start: 200602
  7. REBIF [Concomitant]
     Active Substance: INTERFERON BETA-1A
     Indication: PRODUCT USED FOR UNKNOWN INDICATION
     Dosage: UNK, OTHER (3 INJECTIONS PER WEEK)
     Route: 050
     Dates: start: 2010
  8. CYMBALTA [Concomitant]
     Active Substance: DULOXETINE HYDROCHLORIDE
     Indication: MULTIPLE SCLEROSIS
     Dosage: 60 MG, 1X/DAY:QD
     Route: 065
     Dates: start: 200602
  9. CARBATROL [Suspect]
     Active Substance: CARBAMAZEPINE
     Indication: ANALGESIC THERAPY
     Dosage: 200 MG, 1X/DAY:QD
     Route: 048
  10. VITAMIN B12 [Concomitant]
     Active Substance: CYANOCOBALAMIN
     Indication: NERVE DEGENERATION
     Dosage: 1000 ?G, 1X/DAY:QD
     Route: 065
     Dates: start: 200602
  11. NOVATRON [Concomitant]
     Indication: PRODUCT USED FOR UNKNOWN INDICATION
     Dosage: UNK, OTHER (EVERY 3 MONTHS)
     Route: 041
     Dates: start: 2008, end: 2010
  12. AMANTADINE [Concomitant]
     Active Substance: AMANTADINE
     Indication: MEMORY IMPAIRMENT
     Dosage: 100 MG, 2X/DAY:BID
     Route: 065
     Dates: start: 2015
  13. VICTOZA [Concomitant]
     Active Substance: LIRAGLUTIDE
     Indication: TYPE 2 DIABETES MELLITUS
     Dosage: 0.6 ML, 1X/DAY:QD
     Route: 050
     Dates: start: 20150208
  14. POLYETHYLENE GLYCOL [Concomitant]
     Active Substance: POLYETHYLENE GLYCOLS
     Indication: CONSTIPATION
     Dosage: 3350 POWDER DISSOLVED IN WATER, 1X/DAY:QD
     Route: 065
  15. VITAMIN D3 [Concomitant]
     Active Substance: CHOLECALCIFEROL
     Indication: SUPPLEMENTATION THERAPY
     Dosage: 5000 IU, UNKNOWN
     Route: 065
     Dates: start: 2013

REACTIONS (4)
  - Blood cholesterol increased [Unknown]
  - Product use issue [Not Recovered/Not Resolved]
  - Multiple sclerosis [Unknown]
  - Heart rate increased [Recovered/Resolved]

NARRATIVE: CASE EVENT DATE: 20151205
